FAERS Safety Report 5472570-6 (Version None)
Quarter: 2007Q4

REPORT INFORMATION
  Report Type: 
  Country: None (occurrence: None)
  Receive Date: 20071001
  Receipt Date: 20070205
  Transmission Date: 20080405
  Serious: No
  Sender: FDA-Public Use
  Company Number: US-ASTRAZENECA-2006UW06547

PATIENT
  Age: 65 Year
  Sex: Female
  Weight: 78 kg

DRUGS (8)
  1. ARIMIDEX [Suspect]
     Indication: BREAST CANCER
     Dosage: 30 COUNT BOTTLE
     Route: 048
  2. HYZAR [Concomitant]
  3. ATENOLOL [Concomitant]
  4. ZOCOR [Concomitant]
  5. FUROSEMIDE [Concomitant]
  6. ADVIL LIQUI-GELS [Concomitant]
  7. CELEBREX [Concomitant]
  8. ALEVE [Concomitant]

REACTIONS (7)
  - ARTHRALGIA [None]
  - ARTHRITIS [None]
  - FALL [None]
  - JOINT INJURY [None]
  - LIMB INJURY [None]
  - OEDEMA PERIPHERAL [None]
  - OSTEOPOROSIS [None]
